FAERS Safety Report 6569137-5 (Version None)
Quarter: 2010Q1

REPORT INFORMATION
  Report Type: 
  Country: None (occurrence: None)
  Receive Date: 20100201
  Receipt Date: 20100201
  Transmission Date: 20100710
  Serious: Yes (Hospitalization)
  Sender: FDA-Public Use
  Company Number: None

PATIENT
  Age: 57 Year
  Sex: Male

DRUGS (2)
  1. OXYCODONE HCL [Suspect]
     Dosage: 5 MG OTHER PO
     Route: 048
     Dates: start: 20091125, end: 20091225
  2. LACTULOSE [Suspect]
     Dosage: 4 TBSP TID PO
     Route: 048
     Dates: start: 20090913, end: 20100122

REACTIONS (7)
  - ABNORMAL BEHAVIOUR [None]
  - CONFUSIONAL STATE [None]
  - DIZZINESS [None]
  - ENCEPHALOPATHY [None]
  - MENTAL STATUS CHANGES [None]
  - NARCOTIC INTOXICATION [None]
  - SOMNOLENCE [None]
